FAERS Safety Report 4427247-2 (Version None)
Quarter: 2004Q3

REPORT INFORMATION
  Report Type: 
  Country: None (occurrence: None)
  Receive Date: 20040813
  Receipt Date: 20040813
  Transmission Date: 20050211
  Serious: Yes (Life-Threatening, Disabling)
  Sender: FDA-Public Use
  Company Number: None

PATIENT
  Age: 56 Year
  Sex: Female
  Weight: 57.6068 kg

DRUGS (2)
  1. INDERAL LA [Suspect]
     Indication: BLOOD PRESSURE ABNORMAL
     Dosage: 1/ DAILY
     Dates: start: 20031230, end: 20040601
  2. INDERAL LA [Suspect]
     Indication: MIGRAINE
     Dosage: 1/ DAILY
     Dates: start: 20031230, end: 20040601

REACTIONS (4)
  - ALOPECIA [None]
  - ARRHYTHMIA [None]
  - ATRIAL FIBRILLATION [None]
  - PHARYNGITIS [None]
